FAERS Safety Report 7600999-6 (Version None)
Quarter: 2011Q3

REPORT INFORMATION
  Report Type: 
  Country: None (occurrence: None)
  Receive Date: 20110711
  Receipt Date: 20110616
  Transmission Date: 20111222
  Serious: Yes (Hospitalization)
  Sender: FDA-Public Use
  Company Number: US-GLAXOSMITHKLINE-A0869764A

PATIENT
  Age: 57 Year
  Sex: Male
  Weight: 122.7 kg

DRUGS (11)
  1. AVANDIA [Suspect]
     Indication: DIABETES MELLITUS
     Dosage: 8MG PER DAY
     Route: 048
     Dates: start: 20040605, end: 20070501
  2. BYETTA [Concomitant]
  3. IMDUR [Concomitant]
  4. LOTENSIN [Concomitant]
  5. POTASSIUM [Concomitant]
  6. COREG [Concomitant]
  7. GLYBURIDE [Concomitant]
  8. LANTUS [Concomitant]
  9. LIPITOR [Concomitant]
  10. GLUCOPHAGE [Concomitant]
  11. DIGOXIN [Concomitant]

REACTIONS (4)
  - MYOCARDIAL INFARCTION [None]
  - ATRIAL TACHYCARDIA [None]
  - CARDIAC DISORDER [None]
  - CARDIAC FAILURE CONGESTIVE [None]
